FAERS Safety Report 5238633-5 (Version None)
Quarter: 2007Q1

REPORT INFORMATION
  Report Type: 
  Country: None (occurrence: None)
  Receive Date: 20070214
  Receipt Date: 20070214
  Transmission Date: 20070707
  Serious: Yes (Hospitalization)
  Sender: FDA-Public Use
  Company Number: None

PATIENT
  Age: 66 Year
  Sex: Male
  Weight: 49 kg

DRUGS (1)
  1. AMPHOTERECIN LIPOSOMAL [Suspect]
     Indication: ASPERGILLOSIS
     Dosage: 235 MG PER 24 HRS IV
     Dates: start: 20060616

REACTIONS (1)
  - ANAEMIA [None]
